FAERS Safety Report 4578013-9 (Version None)
Quarter: 2005Q1

REPORT INFORMATION
  Report Type: 
  Country: None (occurrence: None)
  Receive Date: 20050202
  Receipt Date: 20050202
  Transmission Date: 20050727
  Serious: Yes (Other)
  Sender: FDA-Public Use
  Company Number: None

PATIENT
  Age: 48 Year
  Sex: Female

DRUGS (2)
  1. BACTRIM DS [Suspect]
     Dosage: 1 PO BID
     Route: 048
     Dates: start: 20040809
  2. BACTRIM DS [Suspect]
     Dosage: 1 PO BID
     Route: 048
     Dates: start: 20040815

REACTIONS (2)
  - HEADACHE [None]
  - NAUSEA [None]
